FAERS Safety Report 17265609 (Version 1)
Quarter: 2020Q1

REPORT INFORMATION
  Report Type: Report from Study
  Country: US (occurrence: US)
  Receive Date: 20200114
  Receipt Date: 20200114
  Transmission Date: 20200409
  Serious: Yes (Hospitalization)
  Sender: FDA-Public Use
  Company Number: US-ROCHE-2517061

PATIENT
  Sex: Female

DRUGS (4)
  1. ACTEMRA [Suspect]
     Active Substance: TOCILIZUMAB
     Indication: RETINAL ARTERY OCCLUSION
  2. ACTEMRA [Suspect]
     Active Substance: TOCILIZUMAB
     Indication: DIABETIC RETINOPATHY
  3. ACTEMRA [Suspect]
     Active Substance: TOCILIZUMAB
     Indication: TYPE 2 DIABETES MELLITUS
  4. ACTEMRA [Suspect]
     Active Substance: TOCILIZUMAB
     Indication: TEMPORAL ARTERITIS
     Dosage: INJECT 162MG SUBCUTANEOUSLY EVERY WEEK
     Route: 058

REACTIONS (1)
  - Neuritis [Unknown]
